FAERS Safety Report 4972211-8 (Version None)
Quarter: 2006Q2

REPORT INFORMATION
  Report Type: 
  Country: None (occurrence: None)
  Receive Date: 20060413
  Receipt Date: 20060403
  Transmission Date: 20061013
  Serious: Yes (Other)
  Sender: FDA-Public Use
  Company Number: FR-GLAXOSMITHKLINE-B0419475A

PATIENT
  Sex: Female

DRUGS (2)
  1. LAMICTAL [Suspect]
     Route: 048
  2. MILLEPERTUIS [Suspect]
     Indication: INSOMNIA
     Route: 048
     Dates: start: 20060317

REACTIONS (2)
  - CONVULSION [None]
  - DRUG INTERACTION [None]
